FAERS Safety Report 12954695 (Version 2)
Quarter: 2017Q1

REPORT INFORMATION
  Report Type: Report from Study
  Country: IT (occurrence: IT)
  Receive Date: 20161118
  Receipt Date: 20170118
  Transmission Date: 20170428
  Serious: Yes (Other)
  Sender: FDA-Public Use
  Company Number: IT-TEVA-712154ACC

PATIENT

DRUGS (6)
  1. WARFARIN [Suspect]
     Active Substance: WARFARIN
  2. RIFAMPICIN [Suspect]
     Active Substance: RIFAMPIN
  3. ISONIAZID. [Suspect]
     Active Substance: ISONIAZID
  4. CARBAMAZEPINE. [Suspect]
     Active Substance: CARBAMAZEPINE
  5. COUMARIN [Suspect]
     Active Substance: COUMARIN
  6. FENITOINA [Suspect]
     Active Substance: PHENYTOIN

REACTIONS (5)
  - Haemorrhage intracranial [Unknown]
  - Cephalhaematoma [Unknown]
  - Foetal exposure during pregnancy [Unknown]
  - Vitamin K deficiency [Unknown]
  - Intra-abdominal haemorrhage [Unknown]
